FAERS Safety Report 11831905 (Version 1)
Quarter: 2015Q4

REPORT INFORMATION
  Report Type: Spontaneous
  Country: US (occurrence: None)
  Receive Date: 20151211
  Receipt Date: 20151211
  Transmission Date: 20160305
  Serious: Yes (Disabling)
  Sender: FDA-Public Use
  Company Number: None

PATIENT
  Age: 32 Year
  Sex: Female
  Weight: 63.5 kg

DRUGS (19)
  1. BLACK CURRENT SEED OIL [Concomitant]
  2. FISH OIL [Concomitant]
     Active Substance: FISH OIL
  3. VIT. D [Concomitant]
  4. MULTIVITAMIN [Concomitant]
     Active Substance: VITAMINS
  5. ALLERGY SHOTS [Concomitant]
     Active Substance: UNSPECIFIED INGREDIENT
  6. B VIT. COMPLEX [Concomitant]
  7. ZINC [Concomitant]
     Active Substance: ZINC\ZINC CHLORIDE
  8. LO LOESTRIN FE [Suspect]
     Active Substance: ETHINYL ESTRADIOL\NORETHINDRONE ACETATE
     Indication: DYSMENORRHOEA
     Dosage: TAKEN BY MOUTH  ( 1 PILL)
     Dates: start: 20151127, end: 20151203
  9. ALLEGRA [Concomitant]
     Active Substance: FEXOFENADINE HYDROCHLORIDE
  10. MASHROOM COMPLEX [Concomitant]
  11. COPPER [Concomitant]
     Active Substance: COPPER
  12. VENTOLIN [Concomitant]
     Active Substance: ALBUTEROL SULFATE
  13. CALCIUM [Concomitant]
     Active Substance: CALCIUM
  14. NASONEX [Concomitant]
     Active Substance: MOMETASONE FUROATE
  15. POTASSIUM [Concomitant]
     Active Substance: POTASSIUM
  16. PROBIOTIC [Concomitant]
     Active Substance: PROBIOTICS NOS
  17. ALEVE [Concomitant]
     Active Substance: NAPROXEN SODIUM
  18. MAGNESIUM [Concomitant]
     Active Substance: MAGNESIUM
  19. VIT. A [Concomitant]

REACTIONS (8)
  - Breast pain [None]
  - Hyperaesthesia [None]
  - Breast swelling [None]
  - Fatigue [None]
  - Breast tenderness [None]
  - Menorrhagia [None]
  - Gingival bleeding [None]
  - Noninfective gingivitis [None]

NARRATIVE: CASE EVENT DATE: 20151127
